FAERS Safety Report 17489044 (Version 1)
Quarter: 2020Q1

REPORT INFORMATION
  Report Type: Spontaneous
  Country: US (occurrence: US)
  Receive Date: 20200303
  Receipt Date: 20200303
  Transmission Date: 20200409
  Serious: No
  Sender: FDA-Public Use
  Company Number: US-PERRIGO-19US004540

PATIENT
  Age: 78 Year
  Sex: Male
  Weight: 92.97 kg

DRUGS (15)
  1. PRIMIDONE. [Concomitant]
     Active Substance: PRIMIDONE
     Indication: ESSENTIAL TREMOR
     Dosage: 150 MG A DAY
     Route: 065
  2. PRAVASTATIN. [Concomitant]
     Active Substance: PRAVASTATIN
     Indication: HYPERTENSION
     Dosage: 40 MG, QD
     Route: 065
  3. GLIPIZIDE. [Concomitant]
     Active Substance: GLIPIZIDE
     Indication: DIABETES MELLITUS
     Dosage: 5 MG, BID
     Route: 065
  4. NAPROXEN SODIUM. [Suspect]
     Active Substance: NAPROXEN SODIUM
     Indication: ARTHRALGIA
     Dosage: 440 MG, QD, PRN
     Route: 048
     Dates: start: 201810, end: 201903
  5. ASPIRIN                            /00002701/ [Suspect]
     Active Substance: ASPIRIN
     Indication: ANTICOAGULANT THERAPY
     Dosage: 325 MG, QD
     Route: 048
  6. WARFARIN [Suspect]
     Active Substance: WARFARIN
     Dosage: 10 MG, SINGLE
     Route: 048
     Dates: start: 20190327, end: 20190327
  7. NAPROXEN SODIUM. [Suspect]
     Active Substance: NAPROXEN SODIUM
     Dosage: 440 MG, QD
     Route: 048
     Dates: start: 20190322, end: 20190405
  8. WARFARIN [Suspect]
     Active Substance: WARFARIN
     Dosage: 10 MG, SINGLE
     Route: 048
     Dates: start: 20190325, end: 20190329
  9. WARFARIN [Suspect]
     Active Substance: WARFARIN
     Dosage: 10 MG, QD
     Route: 048
     Dates: start: 20190331
  10. WARFARIN [Suspect]
     Active Substance: WARFARIN
     Dosage: 15 MG, SINGLE
     Route: 048
     Dates: start: 20190330, end: 20190330
  11. METFORMIN [Concomitant]
     Active Substance: METFORMIN HYDROCHLORIDE
     Indication: DIABETES MELLITUS
     Dosage: 2000 MG A DAY
     Route: 065
  12. WARFARIN [Suspect]
     Active Substance: WARFARIN
     Indication: DEEP VEIN THROMBOSIS
     Dosage: 10 TO 15 MG, QD
     Route: 048
     Dates: start: 2014, end: 20190324
  13. LISINOPRIL. [Concomitant]
     Active Substance: LISINOPRIL
     Indication: PRODUCT USED FOR UNKNOWN INDICATION
     Dosage: 10 MG, QD
     Route: 065
  14. WARFARIN [Suspect]
     Active Substance: WARFARIN
     Dosage: 10 MG, SINGLE
     Route: 048
     Dates: start: 20190329, end: 20190329
  15. ROPINIROLE. [Concomitant]
     Active Substance: ROPINIROLE
     Indication: RESTLESS LEGS SYNDROME
     Dosage: 0.5 MG, BID
     Route: 065

REACTIONS (2)
  - Incorrect product administration duration [Recovered/Resolved]
  - International normalised ratio increased [Unknown]

NARRATIVE: CASE EVENT DATE: 20190324
